FAERS Safety Report 9775583 (Version 1)
Quarter: 2013Q4

REPORT INFORMATION
  Report Type: Spontaneous
  Country: US (occurrence: US)
  Receive Date: 20131220
  Receipt Date: 20131220
  Transmission Date: 20140711
  Serious: No
  Sender: FDA-Public Use
  Company Number: US-GALDERMA-US13003773

PATIENT
  Age: 47 Year
  Sex: Female

DRUGS (6)
  1. MIRVASO (BRIMONIDINE) TOPICAL GEL, 0.33% [Suspect]
     Indication: ROSACEA
     Dosage: 0.33%
     Route: 061
     Dates: start: 20131116, end: 20131121
  2. SUNSCREEN [Suspect]
     Route: 061
     Dates: start: 2011, end: 20131120
  3. CETAPHIL GENTLE SKIN CLEANSER [Concomitant]
     Indication: THERAPEUTIC SKIN CARE TOPICAL
     Route: 061
  4. SIMPLE VITAL VITAMIN DAY CREAM W SPF 15 [Concomitant]
     Indication: DRY SKIN PROPHYLAXIS
     Route: 061
     Dates: end: 20131120
  5. SIMPLE VITAL VITAMIN DAY CREAM W SPF 15 [Concomitant]
     Indication: PROPHYLAXIS AGAINST SOLAR RADIATION
  6. B KAMINS BOOSTER BLUE CLEANSER [Concomitant]
     Indication: THERAPEUTIC SKIN CARE TOPICAL
     Route: 061

REACTIONS (5)
  - Feeling hot [Not Recovered/Not Resolved]
  - Rash erythematous [Not Recovered/Not Resolved]
  - Skin discomfort [Not Recovered/Not Resolved]
  - Flushing [Not Recovered/Not Resolved]
  - Erythema [Not Recovered/Not Resolved]
